FAERS Safety Report 18120309 (Version 9)
Quarter: 2020Q4

REPORT INFORMATION
  Report Type: Spontaneous
  Country: DE (occurrence: DE)
  Receive Date: 20200806
  Receipt Date: 20201119
  Transmission Date: 20210113
  Serious: Yes (Death, Hospitalization, Other)
  Sender: FDA-Public Use
  Company Number: NVSC2020DE218472

PATIENT
  Age: 61 Year
  Sex: Female
  Weight: 47.8 kg

DRUGS (2)
  1. DOCETAXEL. [Suspect]
     Active Substance: DOCETAXEL
     Indication: LUNG ADENOCARCINOMA
     Dosage: 75 MG/M2, QD (LIQUID, 75 MG/M2 BODY SURFACE AREA)
     Route: 042
     Dates: start: 20200707
  2. VARGATEF [Suspect]
     Active Substance: NINTEDANIB
     Indication: LUNG ADENOCARCINOMA
     Dosage: 200 MG, Q12H (BID)
     Route: 065
     Dates: start: 20200708, end: 20200902

REACTIONS (8)
  - Aphasia [Fatal]
  - Leukocytosis [Recovered/Resolved]
  - White blood cell count decreased [Unknown]
  - Hemiparesis [Fatal]
  - Cerebrovascular accident [Fatal]
  - White blood cell count decreased [Recovered/Resolved]
  - Cerebral infarction [Fatal]
  - Anaemia [Not Recovered/Not Resolved]

NARRATIVE: CASE EVENT DATE: 20200712
